FAERS Safety Report 12263387 (Version 1)
Quarter: 2016Q2

REPORT INFORMATION
  Report Type: Spontaneous
  Country: US (occurrence: US)
  Receive Date: 20160413
  Receipt Date: 20160413
  Transmission Date: 20160815
  Serious: Yes (Other)
  Sender: FDA-Public Use
  Company Number: US-ASTRAZENECA-2016SE37034

PATIENT
  Sex: Female
  Weight: 75.3 kg

DRUGS (9)
  1. ZOMETA [Concomitant]
     Active Substance: ZOLEDRONIC ACID
  2. AZITHROMYCIN ANHYDROUS. [Concomitant]
     Active Substance: AZITHROMYCIN ANHYDROUS
  3. PANTOPRAZOLE [Concomitant]
     Active Substance: PANTOPRAZOLE SODIUM
  4. ZOLADEX [Suspect]
     Active Substance: GOSERELIN ACETATE
     Route: 058
     Dates: start: 20140729
  5. IBRANCE [Suspect]
     Active Substance: PALBOCICLIB
     Dosage: 1 DF DAILY FOR 3 WEEKS, 1 WEEK OFF
     Route: 048
     Dates: start: 20150908, end: 201601
  6. PROCHLORPERAZINE MALEATE. [Concomitant]
     Active Substance: PROCHLORPERAZINE MALEATE
  7. PRISTIQ EXTENDED-RELEASE [Suspect]
     Active Substance: DESVENLAFAXINE SUCCINATE
     Route: 065
  8. LETROZOLE. [Concomitant]
     Active Substance: LETROZOLE
     Dates: start: 20150908
  9. ANASTROZOLE. [Suspect]
     Active Substance: ANASTROZOLE
     Route: 048
     Dates: start: 20140729

REACTIONS (11)
  - Fatigue [Unknown]
  - Back pain [Unknown]
  - Malignant neoplasm progression [Unknown]
  - Cough [Unknown]
  - Pain [Unknown]
  - Nausea [Unknown]
  - Weight decreased [Unknown]
  - Vomiting [Unknown]
  - Arthralgia [Unknown]
  - Decreased appetite [Unknown]
  - Myalgia [Unknown]
